FAERS Safety Report 8012880-1 (Version None)
Quarter: 2011Q4

REPORT INFORMATION
  Report Type: 
  Country: None (occurrence: None)
  Receive Date: 20111229
  Receipt Date: 20111222
  Transmission Date: 20120403
  Serious: Yes (Other)
  Sender: FDA-Public Use
  Company Number: HU-JNJFOC-20111209955

PATIENT
  Age: 3 Year
  Sex: Female

DRUGS (1)
  1. REMICADE [Suspect]
     Indication: CROHN'S DISEASE
     Dosage: INFUSION RECEIVED ON 0,2 AND 6TH WEEK AND THEN ON EVERY 8TH WEEK FOR A YEAR CONTINUOUSLY
     Route: 042
     Dates: start: 20111202

REACTIONS (1)
  - NO ADVERSE EVENT [None]
